FAERS Safety Report 18754567 (Version 3)
Quarter: 2021Q1

REPORT INFORMATION
  Report Type: Report from Study
  Country: None (occurrence: ES)
  Receive Date: 20210119
  Receipt Date: 20210122
  Transmission Date: 20210419
  Serious: Yes (Other)
  Sender: FDA-Public Use
  Company Number: ES-ABBVIE-21K-144-3732172-00

PATIENT
  Age: 77 Year
  Sex: Male

DRUGS (2)
  1. DUODOPA [Suspect]
     Active Substance: CARBIDOPA\LEVODOPA
     Dosage: DOSE ADJUSTED
     Route: 050
     Dates: start: 20210112
  2. DUODOPA [Suspect]
     Active Substance: CARBIDOPA\LEVODOPA
     Indication: PRODUCT USED FOR UNKNOWN INDICATION
     Route: 050
     Dates: start: 20201119, end: 20210112

REACTIONS (8)
  - Anaemia [Recovering/Resolving]
  - Bezoar [Unknown]
  - Faeces discoloured [Unknown]
  - Device deployment issue [Recovering/Resolving]
  - Device kink [Recovered/Resolved]
  - Device dislocation [Recovered/Resolved]
  - Decubitus ulcer [Unknown]
  - Mobility decreased [Unknown]

NARRATIVE: CASE EVENT DATE: 20201203
